FAERS Safety Report 12998549 (Version 1)
Quarter: 2016Q4

REPORT INFORMATION
  Report Type: Spontaneous
  Country: US (occurrence: US)
  Receive Date: 20161203
  Receipt Date: 20161203
  Transmission Date: 20170207
  Serious: Yes (Other)
  Sender: FDA-Public Use
  Company Number: None

PATIENT
  Age: 50 Year
  Sex: Female
  Weight: 74.25 kg

DRUGS (4)
  1. PROPRANOLOL ER CAP [Suspect]
     Active Substance: PROPRANOLOL HYDROCHLORIDE
     Indication: MIGRAINE PROPHYLAXIS
     Dosage: ?          QUANTITY:90 CAPSULE(S);?
     Route: 048
     Dates: start: 20161027
  2. MAGNESIUM [Concomitant]
     Active Substance: MAGNESIUM
  3. SUMATRIPTAN. [Concomitant]
     Active Substance: SUMATRIPTAN
  4. PROPRANOLOL ER CAP [Suspect]
     Active Substance: PROPRANOLOL HYDROCHLORIDE
     Indication: MIGRAINE PROPHYLAXIS
     Dosage: ?          QUANTITY:90 CAPSULE(S);?
     Route: 048
     Dates: start: 20161027

REACTIONS (2)
  - Migraine [None]
  - Product quality issue [None]

NARRATIVE: CASE EVENT DATE: 20161203
